FAERS Safety Report 4280770-6 (Version None)
Quarter: 2004Q1

REPORT INFORMATION
  Report Type: 
  Country: None (occurrence: None)
  Receive Date: 20040127
  Receipt Date: 20040114
  Transmission Date: 20041129
  Serious: Yes (Hospitalization, Disabling)
  Sender: FDA-Public Use
  Company Number: 2004IM000041

PATIENT
  Age: 56 Year
  Sex: Male

DRUGS (4)
  1. ADVAFERON (A643_INTERFERON ALFACON-1) [Suspect]
     Indication: HEPATITIS C
     Dosage: 18 MU; QD; SUBCUTANEOUS
     Route: 058
     Dates: start: 20020310, end: 20020614
  2. ZOLPIDEM TARTRATE [Concomitant]
  3. QUAZEPAM [Concomitant]
  4. EPL (POLYENEPHOSPHATIDYL CHOLINE) [Concomitant]

REACTIONS (1)
  - CEREBRAL INFARCTION [None]
